FAERS Safety Report 7517032-7 (Version None)
Quarter: 2011Q2

REPORT INFORMATION
  Report Type: 
  Country: None (occurrence: None)
  Receive Date: 20110526
  Receipt Date: 20110526
  Transmission Date: 20111010
  Serious: No
  Sender: FDA-Public Use
  Company Number: None

PATIENT
  Age: 9 Month
  Sex: Female

DRUGS (5)
  1. DTPA [Concomitant]
  2. ROTANINS [Concomitant]
  3. PHENMO [Concomitant]
  4. SYNAGIS [Suspect]
     Dosage: IM/RIGHT LEG 2 PREVIOUS DOSES
     Route: 030
  5. ACT HIB [Concomitant]

REACTIONS (2)
  - CONVULSION [None]
  - APNOEA [None]
